FAERS Safety Report 15855534 (Version 1)
Quarter: 2019Q1

REPORT INFORMATION
  Report Type: Spontaneous
  Country: US (occurrence: US)
  Receive Date: 20190122
  Receipt Date: 20190122
  Transmission Date: 20190417
  Serious: Yes (Hospitalization)
  Sender: FDA-Public Use
  Company Number: US-VERTEX PHARMACEUTICALS-2019-000473

PATIENT
  Sex: Male

DRUGS (13)
  1. ALBUTEROL                          /00139501/ [Concomitant]
     Active Substance: ALBUTEROL
  2. XIFAXAN [Concomitant]
     Active Substance: RIFAXIMIN
  3. CALCITRIOL. [Concomitant]
     Active Substance: CALCITRIOL
  4. PANTOPRAZOLE [Concomitant]
     Active Substance: PANTOPRAZOLE
  5. FUROSEMIDE. [Concomitant]
     Active Substance: FUROSEMIDE
  6. ORKAMBI [Suspect]
     Active Substance: IVACAFTOR\LUMACAFTOR
     Indication: CYSTIC FIBROSIS
     Dosage: 2 DOSAGE FORM (200/125 MG), BID
     Route: 048
     Dates: start: 20170803
  7. FEXOFENADINE [Concomitant]
     Active Substance: FEXOFENADINE\FEXOFENADINE HYDROCHLORIDE
  8. URSODIOL. [Concomitant]
     Active Substance: URSODIOL
  9. GENERLAC [Concomitant]
     Active Substance: LACTULOSE
  10. HUMALOG [Concomitant]
     Active Substance: INSULIN LISPRO
  11. LYRICA [Concomitant]
     Active Substance: PREGABALIN
  12. MONTELUKAST [Concomitant]
     Active Substance: MONTELUKAST SODIUM
  13. SERTRALINE [Concomitant]
     Active Substance: SERTRALINE HYDROCHLORIDE

REACTIONS (2)
  - Protein total decreased [Unknown]
  - Testicular swelling [Unknown]
